FAERS Safety Report 20168660 (Version 3)
Quarter: 2022Q1

REPORT INFORMATION
  Report Type: Spontaneous
  Country: CZ (occurrence: CZ)
  Receive Date: 20211210
  Receipt Date: 20220201
  Transmission Date: 20220423
  Serious: Yes (Hospitalization, Other)
  Sender: FDA-Public Use
  Company Number: CZ-Accord-245850

PATIENT
  Age: 27 Year
  Sex: Female
  Weight: 128.5 kg

DRUGS (5)
  1. QUETIAPINE [Suspect]
     Active Substance: QUETIAPINE
     Indication: Bipolar disorder
     Dosage: 200 MILLIGRAM, ONCE A DAY  (200 MG DAILY)
     Route: 065
  2. FLUPENTIXOL [Suspect]
     Active Substance: FLUPENTIXOL
     Indication: Product used for unknown indication
     Dosage: UNK
     Route: 065
  3. CLONAZEPAM [Suspect]
     Active Substance: CLONAZEPAM
     Indication: Anxiety
     Dosage: UNK
     Route: 065
  4. MELPERONE [Suspect]
     Active Substance: MELPERONE
     Indication: Product used for unknown indication
     Dosage: 50 MILLIGRAM, ONCE A DAY(50 MG IN THE EVENING)
     Route: 065
  5. VALPROATE [Suspect]
     Active Substance: VALPROIC ACID
     Indication: Bipolar disorder
     Dosage: 1500 MILLIGRAM, ONCE A DAY (1500 MG, QD)
     Route: 065

REACTIONS (4)
  - Weight increased [Recovered/Resolved]
  - Seizure [Unknown]
  - Therapeutic product effect incomplete [Unknown]
  - Sedation [Unknown]
